FAERS Safety Report 8251652-X (Version None)
Quarter: 2012Q2

REPORT INFORMATION
  Report Type: 
  Country: None (occurrence: None)
  Receive Date: 20120402
  Receipt Date: 20111230
  Transmission Date: 20120825
  Serious: No
  Sender: FDA-Public Use
  Company Number: US-ABBOTT-12P-163-0889963-00

PATIENT
  Age: 64 Year
  Sex: Male
  Weight: 95.34 kg

DRUGS (9)
  1. UNKNOWN MINERAL [Concomitant]
     Indication: PRODUCT USED FOR UNKNOWN INDICATION
  2. ANDROGEL [Suspect]
     Indication: BLOOD TESTOSTERONE DECREASED
     Route: 061
     Dates: start: 20111101
  3. UNKNOWN VITAMIN [Concomitant]
     Indication: PRODUCT USED FOR UNKNOWN INDICATION
  4. UNKNOWN ARTHRITIS MEDICATIONS [Concomitant]
     Indication: ARTHRITIS
     Dates: start: 20110101, end: 20110101
  5. UNKNOWN WATER PILL [Concomitant]
     Indication: PRODUCT USED FOR UNKNOWN INDICATION
     Dosage: IN AM
     Route: 048
  6. ANDROGEL [Suspect]
     Indication: BLOOD TESTOSTERONE DECREASED
     Dosage: UNKNOWN DOSE
     Route: 061
     Dates: end: 20111101
  7. UNKNOWN CHOLESTEROL MEDICATION [Concomitant]
     Indication: BLOOD CHOLESTEROL INCREASED
  8. TYLENOL [Concomitant]
     Indication: ARTHRITIS
     Route: 048
  9. CHERRY JUICE CONCENTRATE [Concomitant]
     Indication: ARTHRITIS
     Dosage: 2 TABLESPOONS, EVERY OTHER DAY
     Route: 048
     Dates: start: 20110101

REACTIONS (5)
  - WEIGHT LOSS DIET [None]
  - LIBIDO DECREASED [None]
  - PRE-EXISTING CONDITION IMPROVED [None]
  - ASTHENIA [None]
  - THERAPEUTIC RESPONSE UNEXPECTED [None]
